FAERS Safety Report 9448073 (Version 1)
Quarter: 2013Q3

REPORT INFORMATION
  Report Type: Spontaneous
  Country: CA (occurrence: None)
  Receive Date: 20130806
  Receipt Date: 20130806
  Transmission Date: 20140515
  Serious: Yes (Death)
  Sender: FDA-Public Use
  Company Number: 2013AL000469

PATIENT
  Age: 93 Year
  Sex: Male

DRUGS (2)
  1. MACROBID (NITROFURANTOIN) [Suspect]
     Indication: PRODUCT USED FOR UNKNOWN INDICATION
     Route: 048
  2. MOXIFLOXACIN HYDROCHLORIDE [Suspect]
     Indication: PRODUCT USED FOR UNKNOWN INDICATION
     Route: 048

REACTIONS (4)
  - Coma [None]
  - Confusional state [None]
  - Hallucination [None]
  - VIIth nerve paralysis [None]
